FAERS Safety Report 4905313-2 (Version None)
Quarter: 2006Q1

REPORT INFORMATION
  Report Type: 
  Country: None (occurrence: None)
  Receive Date: 20060203
  Receipt Date: 20060126
  Transmission Date: 20060701
  Serious: Yes (Hospitalization)
  Sender: FDA-Public Use
  Company Number: 221504

PATIENT
  Age: 13 Year
  Sex: Male

DRUGS (3)
  1. MABTHERA (RITUXIMAB) CONC FOR SOLUTION FOR INFUSION [Suspect]
     Indication: B-CELL LYMPHOMA
     Dosage: 460 MG, 1/WEEK, INTRAVENOUS
     Route: 042
     Dates: start: 20050204, end: 20050223
  2. METHOTREXATE [Suspect]
     Indication: B-CELL LYMPHOMA
     Dates: start: 20050215, end: 20050215
  3. METHOTREXATE [Suspect]
     Indication: B-CELL LYMPHOMA
     Dates: start: 20050223, end: 20050223

REACTIONS (2)
  - NEUTROPENIA [None]
  - THROMBOCYTOPENIA [None]
